FAERS Safety Report 20360098 (Version 3)
Quarter: 2022Q1

REPORT INFORMATION
  Report Type: Spontaneous
  Country: IT (occurrence: IT)
  Receive Date: 20220121
  Receipt Date: 20220209
  Transmission Date: 20220423
  Serious: Yes (Death, Hospitalization, Other)
  Sender: FDA-Public Use
  Company Number: IT-STADA-240527

PATIENT
  Age: 52 Year
  Sex: Female

DRUGS (30)
  1. VORICONAZOLE [Suspect]
     Active Substance: VORICONAZOLE
     Indication: Antifungal treatment
     Dosage: 200 MILLIGRAM, TWO TIMES A DAY
     Route: 065
  2. VORICONAZOLE [Suspect]
     Active Substance: VORICONAZOLE
     Indication: Fungal infection
     Dosage: 2 UNK, ONCE A DAY
     Route: 065
  3. VORICONAZOLE [Suspect]
     Active Substance: VORICONAZOLE
     Dosage: UNK (6 MG/KG EVERY 12 H ON DAY1, THEN 4 MG/KG TWICE A DAY)
     Route: 065
     Dates: start: 2020
  4. VORICONAZOLE [Suspect]
     Active Substance: VORICONAZOLE
     Dosage: 6 MILLIGRAM/KILOGRAM, TWO TIMES A DAY
     Route: 065
     Dates: start: 202008
  5. VORICONAZOLE [Suspect]
     Active Substance: VORICONAZOLE
     Dosage: 4 MILLIGRAM/KILOGRAM, TWO TIMES A DAY
     Route: 065
     Dates: start: 202008
  6. VORICONAZOLE [Suspect]
     Active Substance: VORICONAZOLE
     Dosage: 8 MILLIGRAM/GRAM, ONCE A DAY(6 MILLIGRAM/KILOGRAM, BID (200MG TWICE A DAY))
     Route: 065
     Dates: start: 202008
  7. AMPHOTERICIN B [Suspect]
     Active Substance: AMPHOTERICIN B
     Indication: Antifungal treatment
     Dosage: 3 MILLIGRAM/KILOGRAM, ONCE A DAY
     Route: 065
  8. AMPHOTERICIN B [Suspect]
     Active Substance: AMPHOTERICIN B
     Indication: Infection
     Dosage: 1 DOSAGE FORM, ONCE A DAY
     Route: 065
  9. AMPHOTERICIN B [Suspect]
     Active Substance: AMPHOTERICIN B
     Dosage: 3 MILLIGRAM/KILOGRAM
     Route: 065
     Dates: start: 2020
  10. AVIBACTAM SODIUM\CEFTAZIDIME [Suspect]
     Active Substance: AVIBACTAM SODIUM\CEFTAZIDIME
     Indication: Antifungal treatment
     Dosage: 2.5 GRAM, 3 TIMES A DAY
     Route: 065
     Dates: start: 202008
  11. AVIBACTAM SODIUM\CEFTAZIDIME [Suspect]
     Active Substance: AVIBACTAM SODIUM\CEFTAZIDIME
     Indication: Infection
     Dosage: 3 DOSAGE FORM, ONCE A DAY
     Route: 065
  12. AZACITIDINE [Suspect]
     Active Substance: AZACITIDINE
     Indication: Acute myeloid leukaemia
     Dosage: 75 MILLIGRAM/SQ. METER, ONCE A DAY(6 MILLIGRAM/KILOGRAM, BID (200MG TWICE A DAY ))
     Route: 065
     Dates: start: 2020
  13. AZACITIDINE [Suspect]
     Active Substance: AZACITIDINE
     Dosage: 75 MILLIGRAM/SQ. METER, ONCE A DAY
     Route: 058
  14. CASPOFUNGIN [Suspect]
     Active Substance: CASPOFUNGIN
     Indication: Antifungal treatment
     Dosage: UNK
     Route: 065
     Dates: start: 2020
  15. CASPOFUNGIN [Suspect]
     Active Substance: CASPOFUNGIN
     Indication: Fungal infection
  16. CEFTOLOZANE SULFATE\TAZOBACTAM SODIUM [Suspect]
     Active Substance: CEFTOLOZANE SULFATE\TAZOBACTAM SODIUM
     Indication: Antibiotic therapy
     Dosage: UNK, 3 TIMES A DAY
     Route: 065
     Dates: start: 2020, end: 2020
  17. CLINDAMYCIN [Suspect]
     Active Substance: CLINDAMYCIN
     Indication: Antibiotic therapy
     Dosage: 300 MILLIGRAM, FOUR TIMES/DAY(Q6H (300 MG EVERY 6 H FOR 4 WEEKS))
     Route: 065
     Dates: start: 2020
  18. COLISTIN [Suspect]
     Active Substance: COLISTIN
     Indication: Acute myeloid leukaemia
     Dosage: UNK((9 X 10(6) U/THREE TIMES A DAY FOR 2 WEEKS))
  19. COLISTIN [Suspect]
     Active Substance: COLISTIN
     Indication: Antibiotic therapy
     Dosage: 9000000 INTERNATIONAL UNIT, 3 TIMES A DAY
     Route: 065
     Dates: start: 2020
  20. CYTARABINE [Suspect]
     Active Substance: CYTARABINE
     Indication: Acute myeloid leukaemia
     Dosage: CYCLICAL(INDUCTION THERAPY WAS FOLLOWED BY FOUR CONSOLIDATION CYCLE)
     Route: 065
  21. CYTARABINE [Suspect]
     Active Substance: CYTARABINE
     Dosage: UNK(INDUCTION THERAPY )
     Route: 065
     Dates: start: 2018
  22. CYTARABINE [Suspect]
     Active Substance: CYTARABINE
     Dosage: UNK (REINDUCTION THERAPY)
     Route: 065
     Dates: start: 201910
  23. ENASIDENIB [Suspect]
     Active Substance: ENASIDENIB
     Indication: Acute myeloid leukaemia
     Dosage: 100 MILLIGRAM, ONCE A DAY
     Route: 048
     Dates: start: 202001
  24. ENASIDENIB [Suspect]
     Active Substance: ENASIDENIB
     Dosage: 100 MILLIGRAM, ONCE A DAY
     Route: 065
     Dates: start: 202001
  25. ETOPOSIDE [Suspect]
     Active Substance: ETOPOSIDE
     Indication: Acute myeloid leukaemia
     Dosage: UNK (INDUCTION THERAPY)
     Route: 065
     Dates: start: 201910
  26. FLUDARABINE [Suspect]
     Active Substance: FLUDARABINE PHOSPHATE
     Indication: Acute myeloid leukaemia
     Dosage: UNK (INDUCTION THERAPY )
     Route: 065
  27. FLUDARABINE [Suspect]
     Active Substance: FLUDARABINE PHOSPHATE
     Dosage: UNK (REINDUCTION THERAPY )
     Route: 065
     Dates: start: 201910
  28. IDARUBICIN [Suspect]
     Active Substance: IDARUBICIN
     Indication: Acute myeloid leukaemia
     Dosage: UNK (INDUCTION THERAPY)
     Route: 065
     Dates: start: 2018
  29. IDARUBICIN [Suspect]
     Active Substance: IDARUBICIN
     Dosage: UNK (INDUCTION THERAPY)
     Route: 065
     Dates: start: 2019
  30. IDARUBICIN [Suspect]
     Active Substance: IDARUBICIN
     Dosage: UNK
     Route: 065
     Dates: start: 201910

REACTIONS (17)
  - Multiple organ dysfunction syndrome [Fatal]
  - Fungaemia [Fatal]
  - Neutropenia [Fatal]
  - Septic shock [Fatal]
  - Drug ineffective [Fatal]
  - Geotrichum infection [Fatal]
  - Nausea [Unknown]
  - Condition aggravated [Unknown]
  - Vomiting [Unknown]
  - Pyrexia [Unknown]
  - Pseudomonas infection [Unknown]
  - Staphylococcal infection [Unknown]
  - Sphingomonas paucimobilis infection [Unknown]
  - Enterococcal infection [Unknown]
  - Fungal sepsis [Unknown]
  - Thrombocytopenia [Unknown]
  - Off label use [Unknown]

NARRATIVE: CASE EVENT DATE: 20190101
